FAERS Safety Report 9291638 (Version 1)
Quarter: 2013Q2

REPORT INFORMATION
  Report Type: Spontaneous
  Country: CN (occurrence: CN)
  Receive Date: 20130515
  Receipt Date: 20130515
  Transmission Date: 20140414
  Serious: Yes (Hospitalization)
  Sender: FDA-Public Use
  Company Number: CN-009507513-1305CHN006667

PATIENT
  Age: 24 Year
  Sex: Female
  Weight: 52 kg

DRUGS (1)
  1. CLARITYNE [Suspect]
     Indication: PHARYNGITIS
     Dosage: 10 MG, QD
     Route: 048
     Dates: start: 20111006, end: 20111010

REACTIONS (1)
  - Hepatitis B [Recovering/Resolving]
